FAERS Safety Report 24074441 (Version 2)
Quarter: 2025Q2

REPORT INFORMATION
  Report Type: Spontaneous
  Country: US (occurrence: US)
  Receive Date: 20240710
  Receipt Date: 20250608
  Transmission Date: 20250716
  Serious: No
  Sender: COHERUS
  Company Number: UD Coherus biosciences INC- Case Form -

PATIENT

DRUGS (1)
  1. UDENYCA [Suspect]
     Active Substance: PEGFILGRASTIM-CBQV
     Indication: Product used for unknown indication
     Dosage: 6 MG/0.6ML, Q3WEEKS
     Route: 058
     Dates: start: 20240612

REACTIONS (2)
  - Device malfunction [Unknown]
  - No adverse event [Unknown]

NARRATIVE: CASE EVENT DATE: 20240613
